FAERS Safety Report 5467935-2 (Version None)
Quarter: 2007Q3

REPORT INFORMATION
  Report Type: 
  Country: None (occurrence: None)
  Receive Date: 20070924
  Receipt Date: 20070912
  Transmission Date: 20080115
  Serious: Yes (Death)
  Sender: FDA-Public Use
  Company Number: 2007SP018435

PATIENT
  Age: 61 Year
  Sex: Female

DRUGS (2)
  1. PEG-INTRON [Suspect]
     Indication: HEPATITIS C
     Dosage: SC
     Route: 058
  2. REBETOL [Suspect]
     Indication: HEPATITIS C
     Dosage: PO
     Route: 048

REACTIONS (13)
  - CARDIAC INFECTION [None]
  - CENTRAL NERVOUS SYSTEM INFECTION [None]
  - DISSEMINATED INTRAVASCULAR COAGULATION [None]
  - HEPATIC INFECTION [None]
  - IMMUNE SYSTEM DISORDER [None]
  - KIDNEY INFECTION [None]
  - LUNG INFECTION [None]
  - MULTI-ORGAN FAILURE [None]
  - PNEUMOCOCCAL INFECTION [None]
  - PNEUMOCOCCAL SEPSIS [None]
  - POST PROCEDURAL INFECTION [None]
  - RESPIRATORY ARREST [None]
  - VENTRICULAR FIBRILLATION [None]
